FAERS Safety Report 7716991-7 (Version None)
Quarter: 2011Q3

REPORT INFORMATION
  Report Type: 
  Country: None (occurrence: None)
  Receive Date: 20110829
  Receipt Date: 20110823
  Transmission Date: 20111222
  Serious: Yes (Life-Threatening, Hospitalization)
  Sender: FDA-Public Use
  Company Number: US-US-EMD SERONO, INC.-7034373

PATIENT
  Sex: Female
  Weight: 59 kg

DRUGS (5)
  1. REBIF [Suspect]
     Indication: MULTIPLE SCLEROSIS
     Route: 058
     Dates: start: 20101010, end: 20101231
  2. REBIF [Suspect]
     Route: 058
     Dates: start: 20110101, end: 20110124
  3. KEPPRA [Concomitant]
     Indication: CONVULSION
     Dates: start: 20070101, end: 20110124
  4. KEPPRA [Concomitant]
     Dates: start: 20110126
  5. REBIF [Suspect]
     Dates: start: 20110201

REACTIONS (11)
  - RESPIRATORY ARREST [None]
  - CONVULSION [None]
  - CENTRAL NERVOUS SYSTEM LESION [None]
  - GASTROINTESTINAL DISORDER [None]
  - ASTHENIA [None]
  - INJECTION SITE NODULE [None]
  - RASH [None]
  - MULTIPLE SCLEROSIS RELAPSE [None]
  - MEMORY IMPAIRMENT [None]
  - MUSCULAR WEAKNESS [None]
  - URINARY TRACT INFECTION [None]
